FAERS Safety Report 6434874-X (Version None)
Quarter: 2009Q4

REPORT INFORMATION
  Report Type: 
  Country: None (occurrence: None)
  Receive Date: 20091109
  Receipt Date: 20091109
  Transmission Date: 20100525
  Serious: Yes (Other)
  Sender: FDA-Public Use
  Company Number: None

PATIENT
  Age: 45 Year
  Sex: Female
  Weight: 48.5349 kg

DRUGS (1)
  1. LEVAQUIN [Suspect]
     Indication: OTITIS MEDIA
     Dosage: 750 MG 1 DAILY PO
     Route: 048
     Dates: start: 20091028, end: 20091101

REACTIONS (3)
  - HYPOAESTHESIA [None]
  - INSOMNIA [None]
  - TENDON PAIN [None]
